FAERS Safety Report 6160828-7 (Version None)
Quarter: 2009Q2

REPORT INFORMATION
  Report Type: 
  Country: None (occurrence: None)
  Receive Date: 20090420
  Receipt Date: 20090410
  Transmission Date: 20091009
  Serious: Yes (Hospitalization)
  Sender: FDA-Public Use
  Company Number: FR-ABBOTT-08P-056-0475337-00

PATIENT
  Sex: Female

DRUGS (2)
  1. DEPAKENE [Suspect]
     Indication: EPILEPSY
     Dosage: 500 MG AM, 1000 MG PM
     Dates: start: 20080201, end: 20080414
  2. HEPARIN-FRACTION [Concomitant]
     Indication: DRUG USE FOR UNKNOWN INDICATION
     Route: 065

REACTIONS (10)
  - ACUTE HEPATIC FAILURE [None]
  - ANAEMIA [None]
  - CYTOLYTIC HEPATITIS [None]
  - ESCHERICHIA SEPSIS [None]
  - HEPATIC HAEMORRHAGE [None]
  - JAUNDICE [None]
  - NEUROLOGICAL SYMPTOM [None]
  - PARAPLEGIA [None]
  - PSYCHOMOTOR SKILLS IMPAIRED [None]
  - TACHYCARDIA [None]
